FAERS Safety Report 6637993-8 (Version None)
Quarter: 2010Q1

REPORT INFORMATION
  Report Type: 
  Country: None (occurrence: None)
  Receive Date: 20100317
  Receipt Date: 20100312
  Transmission Date: 20100710
  Serious: Yes (Other)
  Sender: FDA-Public Use
  Company Number: AU-SANOFI-AVENTIS-2010SA014405

PATIENT
  Age: 65 Year
  Sex: Male

DRUGS (2)
  1. CLEXANE [Suspect]
  2. LITHIUM [Concomitant]

REACTIONS (1)
  - HALLUCINATION [None]
